FAERS Safety Report 10642739 (Version 3)
Quarter: 2015Q4

REPORT INFORMATION
  Report Type: Spontaneous
  Country: US (occurrence: US)
  Receive Date: 20141210
  Receipt Date: 20151201
  Transmission Date: 20160304
  Serious: Yes (Life-Threatening, Hospitalization)
  Sender: FDA-Public Use
  Company Number: US-BAYER-2014-179135

PATIENT
  Age: 27 Year
  Sex: Female
  Weight: 66 kg

DRUGS (6)
  1. TOBRAMYCIN. [Concomitant]
     Active Substance: TOBRAMYCIN
  2. ASPIRIN. [Concomitant]
     Active Substance: ASPIRIN
  3. MIRENA [Suspect]
     Active Substance: LEVONORGESTREL
     Indication: CONTRACEPTION
     Dosage: 20 MCG/24HR, CONT
     Route: 015
     Dates: start: 20100623, end: 20120224
  4. SAFFLOWER OIL [Concomitant]
     Active Substance: SAFFLOWER OIL
  5. NUVARING [Concomitant]
     Active Substance: ETHINYL ESTRADIOL\ETONOGESTREL
     Dosage: UNK
     Dates: start: 2012
  6. IBUPROFEN. [Concomitant]
     Active Substance: IBUPROFEN

REACTIONS (7)
  - Abdominal pain [None]
  - Uterine perforation [None]
  - Anhedonia [None]
  - Device issue [None]
  - General physical health deterioration [None]
  - Injury [None]
  - Infection [None]

NARRATIVE: CASE EVENT DATE: 201007
